FAERS Safety Report 24652606 (Version 1)
Quarter: 2024Q4

REPORT INFORMATION
  Report Type: Other
  Country: US (occurrence: US)
  Receive Date: 20241122
  Receipt Date: 20241122
  Transmission Date: 20250114
  Serious: No
  Sender: SIGA TECHNOLOGIES, INC.
  Company Number: US-SIGA Technologies, Inc.-2165640

PATIENT
  Age: 35 Year
  Sex: Female

DRUGS (11)
  1. TPOXX [Suspect]
     Active Substance: TECOVIRIMAT
     Indication: Monkeypox
  2. TPOXX [Suspect]
     Active Substance: TECOVIRIMAT
  3. CIDOFOVIR [Concomitant]
     Active Substance: CIDOFOVIR
  4. Brincindofovir [Concomitant]
  5. Gender-Affiriming Hormone Therapy [Concomitant]
  6. SULFAMETHOXAZOLE AND TRIMETHOPRIM [Concomitant]
     Active Substance: SULFAMETHOXAZOLE\TRIMETHOPRIM
  7. BICTEGRAVIR\EMTRICITABINE\TENOFOVIR ALAFENAMIDE [Concomitant]
     Active Substance: BICTEGRAVIR\EMTRICITABINE\TENOFOVIR ALAFENAMIDE
  8. Vaccinia Intravenous Immunoglobulin (IVIG) [Concomitant]
  9. CIDOFOVIR [Concomitant]
     Active Substance: CIDOFOVIR
  10. METRONIDAZOLE [Concomitant]
     Active Substance: METRONIDAZOLE
  11. CIPROFLOXACIN [Concomitant]
     Active Substance: CIPROFLOXACIN

REACTIONS (1)
  - Drug resistance [Recovered/Resolved]
